FAERS Safety Report 20960567 (Version 1)
Quarter: 2022Q2

REPORT INFORMATION
  Report Type: Spontaneous
  Country: FR (occurrence: FR)
  Receive Date: 20220615
  Receipt Date: 20220615
  Transmission Date: 20220721
  Serious: Yes (Hospitalization, Disabling, Other)
  Sender: FDA-Public Use
  Company Number: FR-ABBVIE-22K-056-4431746-00

PATIENT
  Age: 73 Year
  Sex: Male

DRUGS (2)
  1. VENETOCLAX [Suspect]
     Active Substance: VENETOCLAX
     Indication: Chronic lymphocytic leukaemia refractory
     Route: 048
  2. VENETOCLAX [Suspect]
     Active Substance: VENETOCLAX
     Route: 048

REACTIONS (2)
  - Gastric perforation [Unknown]
  - Coma [Unknown]

NARRATIVE: CASE EVENT DATE: 20220601
